FAERS Safety Report 7523496-5 (Version None)
Quarter: 2011Q2

REPORT INFORMATION
  Report Type: 
  Country: None (occurrence: None)
  Receive Date: 20110603
  Receipt Date: 20110126
  Transmission Date: 20111010
  Serious: Yes (Hospitalization, Other)
  Sender: FDA-Public Use
  Company Number: US-BAYER-201026598NA

PATIENT
  Age: 41 Year
  Sex: Female
  Weight: 58.957 kg

DRUGS (9)
  1. NAPROXEN [Concomitant]
  2. ASCORBIC ACID [Concomitant]
  3. YAZ [Suspect]
     Indication: ORAL CONTRACEPTION
     Dosage: UNK UNK, QD
     Route: 048
     Dates: start: 20050801
  4. PERCOCET [Concomitant]
  5. YASMIN [Suspect]
     Dosage: UNK
     Dates: start: 20051117, end: 20070101
  6. ACETAMINOPHEN [Concomitant]
  7. VICODIN [Concomitant]
  8. YASMIN [Suspect]
     Indication: ORAL CONTRACEPTION
     Dosage: UNK UNK, QD
     Route: 048
     Dates: start: 20050801
  9. DAYQUIL [DEXTROMET HBR,GUAIF,PARACET,PSEUDOEPH HCL] [Concomitant]

REACTIONS (5)
  - CHOLECYSTITIS ACUTE [None]
  - CHOLELITHIASIS [None]
  - DEEP VEIN THROMBOSIS [None]
  - CHOLECYSTITIS [None]
  - PULMONARY EMBOLISM [None]
